FAERS Safety Report 21814841 (Version 2)
Quarter: 2023Q1

REPORT INFORMATION
  Report Type: Report from Study
  Country: US (occurrence: US)
  Receive Date: 20230104
  Receipt Date: 20230106
  Transmission Date: 20230417
  Serious: No
  Sender: FDA-Public Use
  Company Number: US-002147023-NVSC2023US001160

PATIENT
  Sex: Female

DRUGS (1)
  1. XIIDRA [Suspect]
     Active Substance: LIFITEGRAST
     Indication: Product used for unknown indication
     Dosage: 1 GTT OU BID
     Route: 047
     Dates: start: 202112

REACTIONS (3)
  - Eye discharge [Unknown]
  - COVID-19 [Unknown]
  - Eye irritation [Unknown]
